FAERS Safety Report 26182167 (Version 1)
Quarter: 2025Q4

REPORT INFORMATION
  Report Type: Spontaneous
  Country: US (occurrence: US)
  Receive Date: 20251221
  Receipt Date: 20251221
  Transmission Date: 20260117
  Serious: No
  Sender: SUNOVION
  Company Number: US-SMPA-2025SPA016270

PATIENT
  Age: 70 Year
  Sex: Male

DRUGS (13)
  1. ORGOVYX [Suspect]
     Active Substance: RELUGOLIX
     Indication: Prostate cancer
     Dosage: 360 MG, SINGLE
     Route: 048
     Dates: start: 20250804, end: 20250804
  2. ORGOVYX [Suspect]
     Active Substance: RELUGOLIX
     Dosage: 120 MG, QD
     Route: 048
     Dates: start: 20250805
  3. GEMTESA [Suspect]
     Active Substance: VIBEGRON
     Indication: Product used for unknown indication
     Dosage: UNK
     Route: 048
  4. CITALOPRAM HYDROBROMIDE [Concomitant]
     Active Substance: CITALOPRAM HYDROBROMIDE
  5. B12 [Concomitant]
  6. DEPAKOTE ER [Concomitant]
     Active Substance: DIVALPROEX SODIUM
  7. DONEPEZIL [Concomitant]
     Active Substance: DONEPEZIL
  8. Dulcolax [Concomitant]
  9. GAS-X [Concomitant]
     Active Substance: DIMETHICONE
  10. STOOL SOFTENER (DOCUSATE) [Concomitant]
     Active Substance: DOCUSATE
  11. PRILOSEC [Concomitant]
     Active Substance: OMEPRAZOLE MAGNESIUM
  12. TYLENOL 8HR [Concomitant]
     Active Substance: ACETAMINOPHEN
  13. VOLTAREN [Concomitant]
     Active Substance: DICLOFENAC SODIUM

REACTIONS (1)
  - Electrocardiogram abnormal [Unknown]
